FAERS Safety Report 4790120-4 (Version None)
Quarter: 2005Q4

REPORT INFORMATION
  Report Type: 
  Country: None (occurrence: None)
  Receive Date: 20051006
  Receipt Date: 20050927
  Transmission Date: 20060501
  Serious: Yes (Hospitalization)
  Sender: FDA-Public Use
  Company Number: US-MERCK-0509USA03951

PATIENT
  Age: 67 Year
  Sex: Male
  Weight: 81 kg

DRUGS (16)
  1. SINGULAIR [Suspect]
     Indication: ASTHMA
     Route: 048
     Dates: start: 20041007, end: 20041206
  2. PREDNISONE [Concomitant]
     Route: 065
  3. MUCINEX [Concomitant]
     Route: 065
  4. [THERAPY UNSPECIFIED] [Concomitant]
     Route: 065
  5. COMBIVENT [Concomitant]
     Route: 065
     Dates: start: 20041115, end: 20041201
  6. DUONEB [Concomitant]
     Route: 065
     Dates: start: 20041115, end: 20041201
  7. REGLAN [Concomitant]
     Route: 065
     Dates: start: 20041116, end: 20041201
  8. MYCELEX [Concomitant]
     Route: 065
     Dates: start: 20041116
  9. VICODIN [Concomitant]
     Route: 065
     Dates: start: 20041122, end: 20041201
  10. GABAPENTIN [Concomitant]
     Route: 065
  11. ASPIRIN [Concomitant]
     Route: 065
     Dates: start: 20041007, end: 20041115
  12. ADVAIR DISKUS 100/50 [Concomitant]
     Route: 065
     Dates: end: 20041007
  13. ALBUTEROL [Concomitant]
     Route: 065
     Dates: end: 20041007
  14. ATROVENT [Concomitant]
     Route: 065
     Dates: end: 20041007
  15. NEXIUM [Concomitant]
     Route: 065
     Dates: end: 20041007
  16. ZANTAC [Concomitant]
     Route: 065
     Dates: end: 20041007

REACTIONS (12)
  - ALLERGIC GRANULOMATOUS ANGIITIS [None]
  - ANOREXIA [None]
  - ASTHENIA [None]
  - COORDINATION ABNORMAL [None]
  - FATIGUE [None]
  - MYALGIA [None]
  - NEURALGIA [None]
  - PAIN IN EXTREMITY [None]
  - PAIN IN JAW [None]
  - SHOULDER PAIN [None]
  - TREMOR [None]
  - WEIGHT DECREASED [None]
